FAERS Safety Report 9346773 (Version 2)
Quarter: 2013Q3

REPORT INFORMATION
  Report Type: Spontaneous
  Country: US (occurrence: US)
  Receive Date: 20130613
  Receipt Date: 20130702
  Transmission Date: 20140515
  Serious: No
  Sender: FDA-Public Use
  Company Number: US-TEVA-412319USA

PATIENT
  Sex: Female
  Weight: 2.77 kg

DRUGS (1)
  1. PLAN B ONE-STEP [Suspect]
     Dosage: 1.5 MILLIGRAM DAILY;
     Route: 048
     Dates: start: 20120615, end: 20120615

REACTIONS (1)
  - Vomiting projectile [Unknown]
